FAERS Safety Report 15844175 (Version 1)
Quarter: 2019Q1

REPORT INFORMATION
  Report Type: Spontaneous
  Country: US (occurrence: US)
  Receive Date: 20190118
  Receipt Date: 20190118
  Transmission Date: 20190417
  Serious: No
  Sender: FDA-Public Use
  Company Number: US-SA-2019SA011450

PATIENT
  Sex: Female

DRUGS (1)
  1. ALLEGRA-D 24 HOUR [Suspect]
     Active Substance: FEXOFENADINE HYDROCHLORIDE\PSEUDOEPHEDRINE HYDROCHLORIDE
     Dosage: UNK UNK, UNK

REACTIONS (6)
  - Feeling abnormal [Unknown]
  - Product residue present [Unknown]
  - Drug ineffective [Unknown]
  - Nasal congestion [Unknown]
  - Product quality issue [Unknown]
  - Cough [Unknown]
